FAERS Safety Report 8125867-5 (Version None)
Quarter: 2012Q1

REPORT INFORMATION
  Report Type: 
  Country: None (occurrence: None)
  Receive Date: 20120206
  Receipt Date: 20120121
  Transmission Date: 20120608
  Serious: Yes (Hospitalization)
  Sender: FDA-Public Use
  Company Number: 2012AP000236

PATIENT
  Age: 28 Year
  Sex: Male

DRUGS (10)
  1. LORAZEPAM [Concomitant]
  2. PROCHLORPERAZINE [Concomitant]
  3. LACTULOSE [Suspect]
     Dosage: ;PO
     Route: 048
  4. BROMOCRIPTINE MESYLATE [Suspect]
     Indication: NEUROLEPTIC MALIGNANT SYNDROME
     Dosage: 5 MG;Q12H;PO;10 MG;Q8H;PO;5 MG;Q12H;PO
     Route: 048
  5. DANTROLENE SODIUM [Concomitant]
  6. OLANZAPINE [Concomitant]
  7. VALPROIC ACID [Suspect]
     Indication: PRODUCT USED FOR UNKNOWN INDICATION
     Dosage: 500 MG;BID;PO
     Route: 048
  8. CARBAMAZEPINE [Suspect]
     Indication: CONVULSION
     Dosage: 400 MG; BID;
  9. ACETAMINOPHEN [Concomitant]
  10. PHENYTOIN [Concomitant]

REACTIONS (12)
  - NAUSEA [None]
  - PYREXIA [None]
  - HYPERTONIA [None]
  - AGGRESSION [None]
  - PSYCHOTIC DISORDER [None]
  - NEUROLEPTIC MALIGNANT SYNDROME [None]
  - HYPERAMMONAEMIA [None]
  - CONVULSION [None]
  - VOMITING [None]
  - HYPOKALAEMIA [None]
  - AGITATION [None]
  - HYPERTHERMIA [None]
